FAERS Safety Report 24341458 (Version 1)
Quarter: 2024Q3

REPORT INFORMATION
  Report Type: Spontaneous
  Country: GB (occurrence: GB)
  Receive Date: 20240920
  Receipt Date: 20240920
  Transmission Date: 20241017
  Serious: Yes (Death)
  Sender: BOEHRINGER INGELHEIM
  Company Number: GB-BoehringerIngelheim-2024-BI-037610

PATIENT
  Sex: Female

DRUGS (2)
  1. SPESOLIMAB [Suspect]
     Active Substance: SPESOLIMAB
     Indication: Product used for unknown indication
     Dates: start: 20240618
  2. SPESOLIMAB [Suspect]
     Active Substance: SPESOLIMAB
     Dates: start: 20240628

REACTIONS (2)
  - Seizure [Fatal]
  - Nausea [Unknown]
